FAERS Safety Report 9464234 (Version 7)
Quarter: 2014Q1

REPORT INFORMATION
  Report Type: Report from Study
  Country: JP (occurrence: JP)
  Receive Date: 20130819
  Receipt Date: 20140221
  Transmission Date: 20141002
  Serious: Yes (Death, Hospitalization)
  Sender: FDA-Public Use
  Company Number: JP-PFIZER INC-2013230786

PATIENT
  Age: 84 Year
  Sex: Male
  Weight: 41.8 kg

DRUGS (8)
  1. CRIZOTINIB [Suspect]
     Indication: NON-SMALL CELL LUNG CANCER
     Dosage: 250 MG, 2X/DAY
     Route: 048
     Dates: start: 20130708, end: 20130720
  2. DECADRON [Concomitant]
     Dosage: 3 MG, 1X/DAY
     Route: 048
     Dates: start: 20130708, end: 20130721
  3. ULGUT [Concomitant]
     Dosage: 400 MG, 2X/DAY
     Route: 048
     Dates: end: 20130721
  4. OXYCONTIN [Concomitant]
     Dosage: 20 MG, 2X/DAY
     Route: 048
     Dates: end: 20130721
  5. OPSO [Concomitant]
     Dosage: 10 MG, AS NEEDED
     Route: 048
     Dates: end: 20130721
  6. TAKEPRON [Concomitant]
     Dosage: 30 MG, 1X/DAY
     Route: 048
     Dates: end: 20130721
  7. URINORM [Concomitant]
     Dosage: UNK
     Route: 048
     Dates: end: 20130721
  8. PRIMPERAN [Concomitant]
     Dosage: 10 MG, 1X/DAY
     Dates: start: 20130709, end: 20130721

REACTIONS (4)
  - Dyspnoea [Fatal]
  - Pleural effusion [Not Recovered/Not Resolved]
  - Disease progression [Fatal]
  - Non-small cell lung cancer [Fatal]
